FAERS Safety Report 7003224-2 (Version None)
Quarter: 2010Q3

REPORT INFORMATION
  Report Type: 
  Country: None (occurrence: None)
  Receive Date: 20100920
  Receipt Date: 20100412
  Transmission Date: 20110219
  Serious: Yes (Other)
  Sender: FDA-Public Use
  Company Number: US-ASTRAZENECA-2009UW17970

PATIENT
  Sex: Male

DRUGS (10)
  1. SEROQUEL [Suspect]
     Dosage: 200 MG TO 300 MG.
     Route: 048
     Dates: start: 20060109
  2. LEXAPRO [Concomitant]
     Route: 048
     Dates: start: 20060109
  3. HYDROXYZINE PAM [Concomitant]
     Dosage: 20 MG TO 50 MG
     Dates: start: 20060109
  4. CRESTOR [Concomitant]
     Route: 048
     Dates: start: 20060916
  5. LISINOPRIL [Concomitant]
     Dates: start: 20060916
  6. ATENOLOL [Concomitant]
     Dosage: 50 MG TO 100 MG.
     Dates: start: 20060916
  7. LOVASTATIN [Concomitant]
     Dates: start: 20060916
  8. NAPROSYN [Concomitant]
     Indication: ARTHRITIS
     Dates: start: 20060916
  9. ALLOPURINOL [Concomitant]
     Dates: start: 20060916
  10. PROBENECID + COLCHICINE [Concomitant]
     Indication: GOUT

REACTIONS (3)
  - DIABETES MELLITUS [None]
  - DIABETIC KETOACIDOSIS [None]
  - HYPERGLYCAEMIA [None]
